FAERS Safety Report 9419828 (Version 2)
Quarter: 2013Q3

REPORT INFORMATION
  Report Type: Report from Study
  Country: CA (occurrence: CA)
  Receive Date: 20130725
  Receipt Date: 20130912
  Transmission Date: 20140515
  Serious: Yes (Hospitalization, Other)
  Sender: FDA-Public Use
  Company Number: CA-INCYTE CORPORATION-2012IN002749

PATIENT
  Age: 76 Year
  Sex: Male

DRUGS (11)
  1. JAKAVI [Suspect]
     Indication: MYELOFIBROSIS
     Dosage: 5 MG, BID
     Route: 048
     Dates: start: 20121116, end: 201303
  2. JAKAVI [Suspect]
     Dosage: 5 MG, BID
     Route: 048
     Dates: start: 20130401
  3. JAKAVI [Suspect]
     Dosage: 5 MG, BID
     Route: 048
     Dates: end: 20130613
  4. SODIUM CHLORIDE [Concomitant]
  5. JAMIESON MAGNESIUM [Concomitant]
  6. FORZA [Concomitant]
  7. FUROSEMIDE [Concomitant]
  8. LANSOPRAZOLE [Concomitant]
  9. LOPERAMIDE [Concomitant]
  10. ANTIBIOTICS [Concomitant]
  11. PLATELETS [Concomitant]

REACTIONS (7)
  - Calculus urinary [Unknown]
  - Haemoglobin decreased [Unknown]
  - Mouth haemorrhage [Recovered/Resolved]
  - Gingival disorder [Unknown]
  - Prostatomegaly [Not Recovered/Not Resolved]
  - Platelet count decreased [Unknown]
  - Vertigo [Recovering/Resolving]
